FAERS Safety Report 18223921 (Version 1)
Quarter: 2020Q3

REPORT INFORMATION
  Report Type: Spontaneous
  Country: US (occurrence: US)
  Receive Date: 20200902
  Receipt Date: 20200902
  Transmission Date: 20201103
  Serious: No
  Sender: FDA-Public Use
  Company Number: US-TEVA-2020-US-1822994

PATIENT
  Sex: Female
  Weight: 95.25 kg

DRUGS (3)
  1. PREDNISONE ACTAVIS [Suspect]
     Active Substance: PREDNISONE
     Indication: CONDITION AGGRAVATED
     Dosage: TWO TABLETS BY MOUTH TWICE DAILY
     Route: 048
  2. PREDNISONE ACTAVIS [Suspect]
     Active Substance: PREDNISONE
     Dosage: 10 MILLIGRAM DAILY;
     Route: 048
  3. PREDNISONE ACTAVIS [Suspect]
     Active Substance: PREDNISONE
     Dosage: 30 MILLIGRAM DAILY;
     Route: 048

REACTIONS (1)
  - Therapeutic product effect incomplete [Unknown]
